FAERS Safety Report 5381845-0 (Version None)
Quarter: 2007Q3

REPORT INFORMATION
  Report Type: 
  Country: None (occurrence: None)
  Receive Date: 20070709
  Receipt Date: 20070628
  Transmission Date: 20080115
  Serious: Yes (Other)
  Sender: FDA-Public Use
  Company Number: GB-ROCHE-504678

PATIENT

DRUGS (2)
  1. DIAZEPAM [Suspect]
     Indication: DRUG USE FOR UNKNOWN INDICATION
  2. METHADONE HCL [Suspect]
     Indication: DRUG USE FOR UNKNOWN INDICATION

REACTIONS (4)
  - ATTENTION DEFICIT/HYPERACTIVITY DISORDER [None]
  - DEVELOPMENTAL DELAY [None]
  - DRUG WITHDRAWAL SYNDROME NEONATAL [None]
  - NYSTAGMUS [None]
